FAERS Safety Report 4446786-1 (Version None)
Quarter: 2004Q3

REPORT INFORMATION
  Report Type: 
  Country: None (occurrence: None)
  Receive Date: 20040910
  Receipt Date: 20040824
  Transmission Date: 20050211
  Serious: Yes (Life-Threatening, Hospitalization)
  Sender: FDA-Public Use
  Company Number: DSA_81033_2004

PATIENT
  Age: 30 Year
  Sex: Female
  Weight: 105.6881 kg

DRUGS (13)
  1. XYREM [Suspect]
     Indication: CATAPLEXY
     Dosage: 6 G NIGHTLY PO
     Route: 048
     Dates: start: 20030304, end: 20030801
  2. XYREM [Suspect]
     Indication: CATAPLEXY
     Dosage: 9 G NIGHTLY PO
     Route: 048
     Dates: start: 20030801, end: 20040715
  3. XYREM [Suspect]
     Indication: CATAPLEXY
     Dosage: 6 G NIGHTLY PO
     Route: 048
     Dates: start: 20040615, end: 20040707
  4. XYREM [Suspect]
     Indication: CATAPLEXY
     Dosage: 4.5 G NIGHTLY PO
     Route: 048
     Dates: start: 20030101, end: 20030304
  5. UNKNOWN BENZODIAZEPINE [Suspect]
  6. UNKNOWN NARCOTIC PILLS [Suspect]
  7. PROVIGIL [Concomitant]
  8. PROZAC [Concomitant]
  9. ZOLOFT [Concomitant]
  10. RITALIN [Concomitant]
  11. ADVAIR DISKUS 100/50 [Concomitant]
  12. ALBUTEROL [Concomitant]
  13. IBUPROFEN [Concomitant]

REACTIONS (11)
  - CONFUSIONAL STATE [None]
  - DELAYED SLEEP PHASE [None]
  - DIZZINESS [None]
  - DRUG INTERACTION [None]
  - DRUG SCREEN POSITIVE [None]
  - DYSPNOEA [None]
  - MEMORY IMPAIRMENT [None]
  - MENTAL STATUS CHANGES [None]
  - RESPIRATORY RATE DECREASED [None]
  - SELF-MEDICATION [None]
  - TREATMENT NONCOMPLIANCE [None]
